FAERS Safety Report 6165940-4 (Version None)
Quarter: 2009Q2

REPORT INFORMATION
  Report Type: 
  Country: None (occurrence: None)
  Receive Date: 20090422
  Receipt Date: 20090408
  Transmission Date: 20091009
  Serious: Yes (Other)
  Sender: FDA-Public Use
  Company Number: 231061K09USA

PATIENT
  Age: 48 Year
  Sex: Female
  Weight: 120 kg

DRUGS (16)
  1. REBIF [Suspect]
     Indication: MULTIPLE SCLEROSIS
     Dosage: 44 MCG, 3 IN 1 WEEKS, SUBCUTANEOUS
     Route: 058
     Dates: start: 20080923
  2. TRICOR [Suspect]
     Indication: BLOOD CHOLESTEROL INCREASED
     Dosage: 48 MG, 1 IN 1 DAYS
     Dates: start: 20081201
  3. TRICOR [Suspect]
     Indication: BLOOD TRIGLYCERIDES INCREASED
     Dosage: 48 MG, 1 IN 1 DAYS
     Dates: start: 20081201
  4. CYMBALTA [Concomitant]
  5. SYNTHROID [Concomitant]
  6. DYAZIDE [Concomitant]
  7. ESTRADIOL PATCH (ESTRADIOL /00045401/) [Concomitant]
  8. BACLOFEN [Concomitant]
  9. REGLAN (METOCLOPRAMIDE /00041901/) [Concomitant]
  10. TOPAMAX [Concomitant]
  11. REQUIP [Concomitant]
  12. TRAZODONE HCL [Concomitant]
  13. GEODON (ZIPRASIDONE HYDROCHLORIDE) [Concomitant]
  14. VICODIN [Concomitant]
  15. ATIVAN [Concomitant]
  16. LIDODERM PATCHES (LIDOCAIN) [Concomitant]

REACTIONS (5)
  - BLOOD CHOLESTEROL INCREASED [None]
  - BLOOD TRIGLYCERIDES INCREASED [None]
  - DIABETES MELLITUS [None]
  - HEPATIC STEATOSIS [None]
  - HEPATITIS [None]
